FAERS Safety Report 5196196-7 (Version None)
Quarter: 2006Q4

REPORT INFORMATION
  Report Type: 
  Country: None (occurrence: None)
  Receive Date: 20061221
  Receipt Date: 20061211
  Transmission Date: 20070319
  Serious: Yes (Death)
  Sender: FDA-Public Use
  Company Number: 000#8#2006-00489

PATIENT
  Age: 82 Year

DRUGS (4)
  1. ISOSORBIDE MONONITRATE [Suspect]
     Dosage: ORAL
     Route: 048
  2. DILTIAZEM [Suspect]
     Dosage: ORAL
     Route: 048
  3. METOPROLOL TARTRATE [Suspect]
     Dosage: ORAL
     Route: 048
  4. ADDITIONAL SUBSTANCES [Suspect]

REACTIONS (1)
  - COMPLETED SUICIDE [None]
